FAERS Safety Report 16836843 (Version 5)
Quarter: 2019Q4

REPORT INFORMATION
  Report Type: Spontaneous
  Country: PT (occurrence: PT)
  Receive Date: 20190922
  Receipt Date: 20191121
  Transmission Date: 20200122
  Serious: Yes (Hospitalization, Other)
  Sender: FDA-Public Use
  Company Number: PT-009507513-1909PRT007061

PATIENT
  Age: 41 Year
  Sex: Female

DRUGS (1)
  1. DESLORATADINE. [Suspect]
     Active Substance: DESLORATADINE
     Indication: PRODUCT USED FOR UNKNOWN INDICATION
     Dosage: UNK

REACTIONS (1)
  - Drug-induced liver injury [Recovered/Resolved]
